FAERS Safety Report 7958264-3 (Version None)
Quarter: 2011Q4

REPORT INFORMATION
  Report Type: 
  Country: None (occurrence: None)
  Receive Date: 20111205
  Receipt Date: 20111126
  Transmission Date: 20120403
  Serious: Yes (Other)
  Sender: FDA-Public Use
  Company Number: US-CEPHALON-US014924

PATIENT
  Sex: Female
  Weight: 61 kg

DRUGS (9)
  1. GABITRIL [Suspect]
     Route: 048
     Dates: start: 20041202, end: 20050104
  2. METHADONE HCL [Suspect]
     Route: 048
  3. GABITRIL [Suspect]
     Indication: PAIN
     Route: 048
     Dates: start: 20041103, end: 20041115
  4. GABITRIL [Suspect]
     Route: 048
     Dates: start: 20041122, end: 20041201
  5. AMITRIPTYLINE HCL [Concomitant]
     Indication: PAIN
     Route: 048
  6. NEURONTIN [Concomitant]
     Indication: PAIN
     Route: 048
  7. GABITRIL [Suspect]
     Route: 048
     Dates: start: 20050105, end: 20050113
  8. GABITRIL [Suspect]
     Route: 048
     Dates: start: 20041116, end: 20041121
  9. VICODIN [Concomitant]
     Indication: PAIN
     Route: 048

REACTIONS (4)
  - LOSS OF CONSCIOUSNESS [None]
  - LACERATION [None]
  - CONFUSIONAL STATE [None]
  - SPEECH DISORDER [None]
